FAERS Safety Report 22013606 (Version 1)
Quarter: 2023Q1

REPORT INFORMATION
  Report Type: Report from Study
  Country: US (occurrence: US)
  Receive Date: 20230220
  Receipt Date: 20230220
  Transmission Date: 20230418
  Serious: No
  Sender: FDA-Public Use
  Company Number: US-BIOVITRUM-2023US02617

PATIENT
  Sex: Male
  Weight: 12 kg

DRUGS (6)
  1. SYNAGIS [Suspect]
     Active Substance: PALIVIZUMAB
     Indication: Antiviral prophylaxis
     Dosage: 100MG/1ML
  2. PEPCID [Concomitant]
     Active Substance: FAMOTIDINE
  3. ASPIRIN [Concomitant]
     Active Substance: ASPIRIN
  4. SILDEC DM [Concomitant]
     Active Substance: BROMPHENIRAMINE MALEATE\DEXTROMETHORPHAN HYDROBROMIDE\PSEUDOEPHEDRINE HYDROCHLORIDE
  5. KATERZIA [Concomitant]
     Active Substance: AMLODIPINE BENZOATE
  6. IRON\VITAMINS [Concomitant]
     Active Substance: IRON\VITAMINS

REACTIONS (1)
  - Pyrexia [Unknown]
